FAERS Safety Report 5505483-1 (Version None)
Quarter: 2007Q4

REPORT INFORMATION
  Report Type: 
  Country: None (occurrence: None)
  Receive Date: 20071102
  Receipt Date: 20070328
  Transmission Date: 20080405
  Serious: Yes (Other)
  Sender: FDA-Public Use
  Company Number: GB-PURDUE-GBR_2007_0002903

PATIENT
  Sex: Female

DRUGS (2)
  1. DIHYDROCODEINE BITARTRATE INJ [Suspect]
     Indication: BACK PAIN
     Route: 048
  2. CHAMPIX [Suspect]
     Indication: SMOKING CESSATION THERAPY
     Dosage: .5 MG, BID
     Route: 048
     Dates: start: 20070227, end: 20070316

REACTIONS (5)
  - DEREALISATION [None]
  - DRUG INTERACTION POTENTIATION [None]
  - DYSPHORIA [None]
  - FEELING ABNORMAL [None]
  - MEMORY IMPAIRMENT [None]
